FAERS Safety Report 19879226 (Version 1)
Quarter: 2021Q3

REPORT INFORMATION
  Report Type: Spontaneous
  Country: US (occurrence: US)
  Receive Date: 20210923
  Receipt Date: 20210923
  Transmission Date: 20211014
  Serious: Yes (Hospitalization, Other)
  Sender: FDA-Public Use
  Company Number: US-ORGANON-O2109USA001389

PATIENT
  Sex: Female
  Weight: 54.4 kg

DRUGS (9)
  1. SINEMET [Suspect]
     Active Substance: CARBIDOPA\LEVODOPA
     Dosage: UNK, FOUR TIMES A DAY
     Route: 048
     Dates: start: 2011
  2. GOCOVRI [Suspect]
     Active Substance: AMANTADINE
     Indication: DYSKINESIA
     Dosage: 68.5 MILLIGRAM, 1X/DAY NIGHTLY AT BEDTIME (HS) (FORMULATION REPORTED AS EXTENDED?RELEASE CAPSULE)
     Route: 048
     Dates: start: 20210618, end: 20210701
  3. OMEPRAZOLE. [Concomitant]
     Active Substance: OMEPRAZOLE
     Dosage: UNK
     Dates: start: 2019
  4. ENTACAPONE. [Concomitant]
     Active Substance: ENTACAPONE
     Dosage: UNK
  5. XELJANZ [Concomitant]
     Active Substance: TOFACITINIB CITRATE
     Dosage: UNK
  6. MELOXICAM. [Concomitant]
     Active Substance: MELOXICAM
     Dosage: UNK
  7. SERTRALINE [Concomitant]
     Active Substance: SERTRALINE HYDROCHLORIDE
     Dosage: 100 MILLIGRAM
  8. GOCOVRI [Suspect]
     Active Substance: AMANTADINE
     Indication: DYSKINESIA
     Dosage: 137 MILLIGRAM, 1X/DAY NIGHTLY AT BEDTIME (HS) (FORMULATION REPORTED AS EXTENDED?RELEASE CAPSULE)
     Route: 048
     Dates: start: 20210702
  9. ALPRAZOLAM. [Concomitant]
     Active Substance: ALPRAZOLAM
     Dosage: UNK

REACTIONS (22)
  - Pharyngeal ulceration [Unknown]
  - Productive cough [Not Recovered/Not Resolved]
  - Thirst [Not Recovered/Not Resolved]
  - Dry mouth [Not Recovered/Not Resolved]
  - Oral discomfort [Unknown]
  - Increased upper airway secretion [Not Recovered/Not Resolved]
  - Middle insomnia [Unknown]
  - Dysstasia [Not Recovered/Not Resolved]
  - Drug ineffective [Unknown]
  - Muscle rigidity [Unknown]
  - Salivary hypersecretion [Not Recovered/Not Resolved]
  - Accident [Unknown]
  - Knee operation [Unknown]
  - Weight increased [Unknown]
  - Haematemesis [Unknown]
  - Throat irritation [Unknown]
  - Muscular weakness [Unknown]
  - Nausea [Unknown]
  - Oral mucosal discolouration [Unknown]
  - Myalgia [Not Recovered/Not Resolved]
  - Inappropriate schedule of product administration [Unknown]
  - Muscle tightness [Not Recovered/Not Resolved]

NARRATIVE: CASE EVENT DATE: 2020
